FAERS Safety Report 21593199 (Version 1)
Quarter: 2022Q4

REPORT INFORMATION
  Report Type: Spontaneous
  Country: US (occurrence: None)
  Receive Date: 20221111
  Receipt Date: 20221111
  Transmission Date: 20230112
  Serious: No
  Sender: FDA-Public Use
  Company Number: None

PATIENT
  Sex: Female

DRUGS (1)
  1. SIMPONI ARIA [Suspect]
     Active Substance: GOLIMUMAB
     Indication: Psoriatic arthropathy
     Dosage: OTHER FREQUENCY : EVERY 8 WEEKS;?
     Route: 042
     Dates: start: 202210

REACTIONS (1)
  - Drug ineffective [None]
